FAERS Safety Report 21206290 (Version 2)
Quarter: 2022Q3

REPORT INFORMATION
  Report Type: Spontaneous
  Country: FR (occurrence: FR)
  Receive Date: 20220812
  Receipt Date: 20220818
  Transmission Date: 20221027
  Serious: Yes (Other)
  Sender: FDA-Public Use
  Company Number: FR-GSKCCFEMEA-Case-01538547_AE-60400

PATIENT

DRUGS (1)
  1. SERETIDE [Suspect]
     Active Substance: FLUTICASONE PROPIONATE\SALMETEROL XINAFOATE
     Indication: Product used for unknown indication
     Dosage: UNK, 250/25MCG-INH 134A DC 120D

REACTIONS (6)
  - Fungal pharyngitis [Unknown]
  - Oral fungal infection [Unknown]
  - Dysgeusia [Unknown]
  - Taste disorder [Unknown]
  - Poor quality product administered [Unknown]
  - Product complaint [Unknown]
